FAERS Safety Report 17205435 (Version 2)
Quarter: 2020Q1

REPORT INFORMATION
  Report Type: Report from Study
  Country: US (occurrence: US)
  Receive Date: 20191227
  Receipt Date: 20200212
  Transmission Date: 20200409
  Serious: Yes (Hospitalization)
  Sender: FDA-Public Use
  Company Number: US-BRISTOL-MYERS SQUIBB COMPANY-BMS-2019-114039

PATIENT
  Age: 51 Year
  Sex: Female
  Weight: 64.4 kg

DRUGS (39)
  1. NIVOLUMAB [Suspect]
     Active Substance: NIVOLUMAB
     Indication: SMALL CELL LUNG CANCER
     Dosage: 240 MILLIGRAM, Q2WK
     Route: 042
     Dates: start: 20190808, end: 20191121
  2. ALPRAZOLAM. [Concomitant]
     Active Substance: ALPRAZOLAM
     Indication: PRODUCT USED FOR UNKNOWN INDICATION
     Dosage: 0.5MG TAB/2MG TAB, QHS
     Route: 048
     Dates: start: 20191113, end: 20191123
  3. RIVAROXABAN [Concomitant]
     Active Substance: RIVAROXABAN
     Indication: PRODUCT USED FOR UNKNOWN INDICATION
     Dosage: 15 MILLIGRAM, BID
     Route: 048
     Dates: start: 20191030, end: 20191130
  4. HEPARIN [Concomitant]
     Active Substance: HEPARIN SODIUM
     Indication: PRODUCT USED FOR UNKNOWN INDICATION
     Dosage: 400 UNIT, Q5MIN, PRN
     Route: 042
     Dates: start: 20191122, end: 20191201
  5. POLYETHYLENE GLYCOL 3350. [Concomitant]
     Active Substance: POLYETHYLENE GLYCOL 3350
     Indication: CONSTIPATION
     Dosage: 17 GRAM, PRN
     Route: 048
     Dates: start: 201807
  6. AZELASTINE [AZELASTINE HYDROCHLORIDE] [Concomitant]
     Indication: ANAPHYLACTIC REACTION
     Dosage: 1 DROP, BID, PRN
     Route: 047
     Dates: start: 2013
  7. AZELASTINE HYDROCHLORIDE;FLUTICASONE PROPIONATE [Concomitant]
     Indication: RHINITIS ALLERGIC
     Dosage: 13.7MCG/50MCG, BID
     Route: 065
     Dates: start: 2013
  8. XYZAL [Concomitant]
     Active Substance: LEVOCETIRIZINE DIHYDROCHLORIDE
     Indication: PAIN
     Dosage: 5 MILLIGRAM, QD
     Route: 048
     Dates: start: 20190615
  9. LORAZEPAM. [Concomitant]
     Active Substance: LORAZEPAM
     Indication: NAUSEA
     Dosage: 0.5 MILLIGRAM, ONCE
     Route: 042
     Dates: start: 20191121, end: 20191121
  10. IPILIMUMAB [Suspect]
     Active Substance: IPILIMUMAB
     Indication: SMALL CELL LUNG CANCER
     Dosage: 211 MILLIGRAM, Q3WK
     Route: 042
     Dates: start: 20190808, end: 20191010
  11. ROSUVASTATIN. [Concomitant]
     Active Substance: ROSUVASTATIN
     Indication: BLOOD CHOLESTEROL INCREASED
     Dosage: 10 MILLIGRAM, QHS
     Route: 048
     Dates: start: 2009
  12. POTASSIUM CHLORIDE. [Concomitant]
     Active Substance: POTASSIUM CHLORIDE
     Indication: PRODUCT USED FOR UNKNOWN INDICATION
     Dosage: 10 MILLIEQUIVALENT, QD
     Route: 048
     Dates: start: 20191113
  13. MS CONTIN [Concomitant]
     Active Substance: MORPHINE SULFATE
     Indication: PAIN
     Dosage: 15 MILLIGRAM, TID
     Route: 048
     Dates: start: 20190806
  14. LEVOTHYROXINE. [Concomitant]
     Active Substance: LEVOTHYROXINE
     Indication: HYPOTHYROIDISM
     Dosage: 50 MICROGRAM, QD
     Route: 048
     Dates: start: 20191010, end: 20191112
  15. NICODERM CQ [Concomitant]
     Active Substance: NICOTINE
     Indication: TOBACCO ABUSE
     Dosage: 14 MILLIGRAM, QD
     Route: 062
     Dates: start: 20191028
  16. PLINABULIN [Suspect]
     Active Substance: PLINABULIN
     Indication: SMALL CELL LUNG CANCER
     Dosage: 35 MILLIGRAM, Q2WK
     Route: 042
     Dates: start: 20190808, end: 20191121
  17. RIVAROXABAN [Concomitant]
     Active Substance: RIVAROXABAN
     Indication: PULMONARY EMBOLISM
     Dosage: 20 MILLIGRAM, QD
     Route: 048
     Dates: start: 20191121, end: 20191126
  18. HYDROCORTISONE. [Concomitant]
     Active Substance: HYDROCORTISONE
     Indication: NAUSEA
     Dosage: 100 MILLIGRAM, ONCE
     Route: 042
     Dates: start: 20191121, end: 20191121
  19. ALBUTEROL SULFATE AND IPRATROPIUM BROMIDE [Concomitant]
     Active Substance: ALBUTEROL SULFATE\IPRATROPIUM BROMIDE
     Indication: ASTHMA
     Dosage: 2.5/0.5MG, QID, PRN
     Dates: start: 2012
  20. ZYRTEC [Concomitant]
     Active Substance: CETIRIZINE HYDROCHLORIDE
     Indication: RHINITIS ALLERGIC
     Dosage: 10 MILLIGRAM, QD
     Route: 048
     Dates: start: 20191010
  21. METOPROLOL SUCCINATE. [Concomitant]
     Active Substance: METOPROLOL SUCCINATE
     Indication: SINUS TACHYCARDIA
     Dosage: 25 MICROGRAM, QD
     Route: 048
     Dates: start: 20191124, end: 20191130
  22. MONTELUKAST [Concomitant]
     Active Substance: MONTELUKAST SODIUM
     Indication: RHINITIS ALLERGIC
     Dosage: 10 MILLIGRAM, QD
     Route: 048
     Dates: start: 2004
  23. METOPROLOL. [Concomitant]
     Active Substance: METOPROLOL
     Indication: SINUS TACHYCARDIA
     Dosage: 25 MILLIGRAM, QD
     Route: 048
     Dates: start: 201901
  24. EPINEPHRINE. [Concomitant]
     Active Substance: EPINEPHRINE
     Indication: ANAPHYLACTIC REACTION
     Dosage: 0.3 MILLIGRAM, ONCE PRN
     Route: 030
     Dates: start: 2012
  25. ALPRAZOLAM. [Concomitant]
     Active Substance: ALPRAZOLAM
     Indication: ANXIETY
     Dosage: 0.5MG TAB/2MG TAB, QHS
     Route: 048
     Dates: start: 1991, end: 20191112
  26. ALBUTEROL [SALBUTAMOL] [Concomitant]
     Active Substance: ALBUTEROL
     Indication: ASTHMA
     Dosage: 90MCG/2 PUFFS, Q4H, PRN
     Route: 065
     Dates: start: 1986
  27. MAGNESIUM SULFATE. [Concomitant]
     Active Substance: MAGNESIUM SULFATE
     Indication: HYPOMAGNESAEMIA
     Dosage: 2GRAM, ONCE
     Route: 042
     Dates: start: 20191122, end: 20191122
  28. TIZANIDINE. [Concomitant]
     Active Substance: TIZANIDINE
     Indication: BACK PAIN
     Dosage: 4 MILLIGRAM, TID
     Route: 048
     Dates: start: 2009
  29. POTASSIUM CHLORIDE. [Concomitant]
     Active Substance: POTASSIUM CHLORIDE
     Indication: HYPOKALAEMIA
     Dosage: 20 MILLIEQUIVALENT, QOD
     Route: 048
     Dates: start: 201906, end: 20191112
  30. OMEPRAZOLE. [Concomitant]
     Active Substance: OMEPRAZOLE
     Indication: GASTROOESOPHAGEAL REFLUX DISEASE
     Dosage: 40 MILLIGRAM, QD
     Route: 048
     Dates: start: 2014
  31. HYDROCODONE BITARTRATE AND ACETAMINOPHEN [Concomitant]
     Active Substance: ACETAMINOPHEN\HYDROCODONE BITARTRATE
     Indication: PAIN
     Dosage: 10MG/325MG, Q4H, PRN
     Route: 048
     Dates: start: 2014, end: 20191123
  32. ZADITOR [KETOTIFEN] [Concomitant]
     Indication: PRODUCT USED FOR UNKNOWN INDICATION
     Dosage: 1 DROP
     Route: 047
     Dates: start: 20191122, end: 20191130
  33. MAGNESIUM OXIDE. [Concomitant]
     Active Substance: MAGNESIUM OXIDE
     Indication: HYPOMAGNESAEMIA
     Dosage: 2 GRAM, ONCE
     Route: 042
     Dates: start: 20191122, end: 20191127
  34. GABAPENTIN. [Concomitant]
     Active Substance: GABAPENTIN
     Indication: MYALGIA
     Dosage: 300 MILLIGRAM, PRN, DAILY
     Route: 048
     Dates: start: 2016
  35. ONDANSETRON [Concomitant]
     Active Substance: ONDANSETRON
     Indication: NAUSEA
     Dosage: 8 MILLIGRAM, ONCE
     Route: 042
     Dates: start: 20191121, end: 20191121
  36. DIPHENHYDRAMINE. [Concomitant]
     Active Substance: DIPHENHYDRAMINE
     Indication: NAUSEA
     Dosage: 50 MILLIGRAM, ONCE
     Route: 042
     Dates: start: 20191121, end: 20191121
  37. PERCOCET [Concomitant]
     Active Substance: ACETAMINOPHEN\OXYCODONE HYDROCHLORIDE
     Indication: PAIN
     Dosage: 5/325MG, Q4H, PRN
     Route: 048
     Dates: start: 20191123, end: 20191126
  38. XARELTO [Concomitant]
     Active Substance: RIVAROXABAN
     Indication: EMBOLISM
     Dosage: 20 MILLIGRAM, QD
     Route: 048
     Dates: start: 20191122, end: 20191125
  39. MAXALT [Concomitant]
     Active Substance: RIZATRIPTAN BENZOATE
     Indication: HEADACHE
     Dosage: 10 MILLIGRAM
     Route: 048
     Dates: start: 20191122, end: 20191124

REACTIONS (1)
  - Pyrexia [Recovered/Resolved]

NARRATIVE: CASE EVENT DATE: 20191122
